FAERS Safety Report 6394883-6 (Version None)
Quarter: 2009Q4

REPORT INFORMATION
  Report Type: 
  Country: None (occurrence: None)
  Receive Date: 20091009
  Receipt Date: 20091005
  Transmission Date: 20100525
  Serious: Yes (Other)
  Sender: FDA-Public Use
  Company Number: GR-BRISTOL-MYERS SQUIBB COMPANY-14806657

PATIENT
  Age: 65 Year
  Sex: Female

DRUGS (1)
  1. KENACORT [Suspect]
     Indication: DIABETIC RETINAL OEDEMA
     Route: 031

REACTIONS (1)
  - STAPHYLOMA [None]
